FAERS Safety Report 12411294 (Version 1)
Quarter: 2016Q2

REPORT INFORMATION
  Report Type: Spontaneous
  Country: US (occurrence: None)
  Receive Date: 20160526
  Receipt Date: 20160526
  Transmission Date: 20160815
  Serious: Yes (Hospitalization)
  Sender: FDA-Public Use
  Company Number: None

PATIENT
  Age: 78 Year
  Sex: Female
  Weight: 74.84 kg

DRUGS (32)
  1. AMBIEN [Suspect]
     Active Substance: ZOLPIDEM TARTRATE
     Indication: INSOMNIA
     Dosage: 10MG 1-BEDTIME MOUTH PM
     Route: 048
     Dates: start: 20160105, end: 20160118
  2. OMEPRAZOLE. [Concomitant]
     Active Substance: OMEPRAZOLE
  3. BUDESONIDE. [Concomitant]
     Active Substance: BUDESONIDE
  4. LEVAQUIN [Concomitant]
     Active Substance: LEVOFLOXACIN
  5. BUPROPION. [Concomitant]
     Active Substance: BUPROPION
  6. OXYCONTEN [Concomitant]
  7. MULTIVITAMIN [Concomitant]
     Active Substance: VITAMINS
  8. PROBATIC [Concomitant]
  9. PRAVASTATIN [Concomitant]
     Active Substance: PRAVASTATIN\PRAVASTATIN SODIUM
  10. ALLEGRA [Concomitant]
     Active Substance: FEXOFENADINE HYDROCHLORIDE
  11. FLOVENT DISKUS [Concomitant]
     Active Substance: FLUTICASONE PROPIONATE
  12. BACLOFEN. [Concomitant]
     Active Substance: BACLOFEN
  13. TRAMADOL. [Concomitant]
     Active Substance: TRAMADOL
  14. MELOXICAM. [Concomitant]
     Active Substance: MELOXICAM
  15. AMOXICILLIN. [Concomitant]
     Active Substance: AMOXICILLIN
  16. LUTEZIN+ ZFAX .. [Concomitant]
  17. NEXIUM [Concomitant]
     Active Substance: ESOMEPRAZOLE MAGNESIUM
  18. IPRATROPI/ALB [Concomitant]
  19. PROAIR HFA [Concomitant]
     Active Substance: ALBUTEROL SULFATE
  20. AVELOX [Concomitant]
     Active Substance: MOXIFLOXACIN HYDROCHLORIDE
  21. ACYCLOVIR. [Concomitant]
     Active Substance: ACYCLOVIR
  22. CALCIUM [Concomitant]
     Active Substance: CALCIUM
  23. CHLORHEXIDINE [Concomitant]
     Active Substance: CHLORHEXIDINE
  24. PREDNISONE. [Concomitant]
     Active Substance: PREDNISONE
  25. NYSTATIN. [Concomitant]
     Active Substance: NYSTATIN
  26. MONTELUKAST (SINGULAR) [Concomitant]
  27. AZELASTINE [Concomitant]
     Active Substance: AZELASTINE
  28. NASACORT [Concomitant]
     Active Substance: TRIAMCINOLONE ACETONIDE
  29. ASPIRIN. [Concomitant]
     Active Substance: ASPIRIN
  30. VITAMIN D3 [Concomitant]
     Active Substance: CHOLECALCIFEROL
  31. VITAMIN B12 [Concomitant]
     Active Substance: CYANOCOBALAMIN
  32. MELATONIN [Concomitant]
     Active Substance: MELATONIN

REACTIONS (4)
  - Loss of consciousness [None]
  - Memory impairment [None]
  - Wrist fracture [None]
  - Fall [None]

NARRATIVE: CASE EVENT DATE: 20160108
